FAERS Safety Report 4526391-9 (Version None)
Quarter: 2004Q4

REPORT INFORMATION
  Report Type: 
  Country: None (occurrence: None)
  Receive Date: 20041213
  Receipt Date: 20041130
  Transmission Date: 20050328
  Serious: Yes (Other)
  Sender: FDA-Public Use
  Company Number: 140797USA

PATIENT
  Age: 33 Year
  Sex: Female

DRUGS (4)
  1. PIMOZIDE [Suspect]
     Indication: DEPERSONALISATION
     Dosage: 2 MILLIGRAM
     Route: 048
     Dates: start: 20040826, end: 20040831
  2. PIMOZIDE [Suspect]
     Indication: DEREALISATION
     Dosage: 2 MILLIGRAM
     Route: 048
     Dates: start: 20040826, end: 20040831
  3. FLUOXETINE [Concomitant]
  4. DIAZEPAM [Concomitant]

REACTIONS (1)
  - ARTHRALGIA [None]
